FAERS Safety Report 8026330-2 (Version None)
Quarter: 2012Q1

REPORT INFORMATION
  Report Type: 
  Country: None (occurrence: None)
  Receive Date: 20120105
  Receipt Date: 20111219
  Transmission Date: 20120608
  Serious: No
  Sender: FDA-Public Use
  Company Number: US-ABBOTT-11P-163-0885133-00

PATIENT
  Sex: Female
  Weight: 53.572 kg

DRUGS (8)
  1. SYNTHROID [Suspect]
     Dates: start: 20111203
  2. SYNTHROID [Suspect]
     Indication: HORMONE REPLACEMENT THERAPY
     Dates: start: 20111029, end: 20111203
  3. VALTREX [Concomitant]
     Indication: NASAL DISCOMFORT
  4. VITAMIN D [Concomitant]
     Indication: PROPHYLAXIS
  5. GLUCOSAMINE CHONDROITIN [Concomitant]
     Indication: PROPHYLAXIS
  6. FOLIC ACID [Concomitant]
     Indication: PROPHYLAXIS
  7. CALCIUM ACETATE [Concomitant]
     Indication: PROPHYLAXIS
  8. LIPITOR [Concomitant]
     Indication: BLOOD CHOLESTEROL INCREASED

REACTIONS (7)
  - MUSCULOSKELETAL PAIN [None]
  - FEELING COLD [None]
  - INSOMNIA [None]
  - MUSCULOSKELETAL CHEST PAIN [None]
  - PALPITATIONS [None]
  - CHILLS [None]
  - THROAT TIGHTNESS [None]
